FAERS Safety Report 24235024 (Version 1)
Quarter: 2024Q3

REPORT INFORMATION
  Report Type: Spontaneous
  Country: US (occurrence: US)
  Receive Date: 20240821
  Receipt Date: 20240821
  Transmission Date: 20241017
  Serious: No
  Sender: Solventum
  Company Number: US-3M-2024-US-032174

PATIENT
  Age: 90 Year
  Sex: Female
  Weight: 56.7 kg

DRUGS (3)
  1. PERIDEX [Suspect]
     Active Substance: CHLORHEXIDINE GLUCONATE
     Indication: Salivary gland enlargement
     Dosage: GARGLE 2 X DAY FOR TWO WEEKS
     Route: 048
     Dates: start: 20240522, end: 20240601
  2. ANTIHISTAMINES NOS [Concomitant]
     Active Substance: ANTIHISTAMINES NOS
  3. ELIQUIS [Concomitant]
     Active Substance: APIXABAN

REACTIONS (3)
  - Lip swelling [Not Recovered/Not Resolved]
  - Tongue discomfort [Not Recovered/Not Resolved]
  - Gingival discomfort [Not Recovered/Not Resolved]

NARRATIVE: CASE EVENT DATE: 20240522
